FAERS Safety Report 7229489-X (Version None)
Quarter: 2011Q1

REPORT INFORMATION
  Report Type: 
  Country: None (occurrence: None)
  Receive Date: 20110117
  Receipt Date: 20110104
  Transmission Date: 20110831
  Serious: Yes (Other)
  Sender: FDA-Public Use
  Company Number: RS-GENZYME-CERZ-1001748

PATIENT
  Age: 9 Year
  Sex: Male

DRUGS (1)
  1. CEREZYME [Suspect]
     Indication: GAUCHER'S DISEASE

REACTIONS (3)
  - LYMPHADENOPATHY [None]
  - HYPERGAMMAGLOBULINAEMIA [None]
  - CHITOTRIOSIDASE INCREASED [None]
